FAERS Safety Report 19609998 (Version 2)
Quarter: 2021Q3

REPORT INFORMATION
  Report Type: Spontaneous
  Country: US (occurrence: US)
  Receive Date: 20210726
  Receipt Date: 20210916
  Transmission Date: 20211014
  Serious: No
  Sender: FDA-Public Use
  Company Number: US-BAYER-2021-182402

PATIENT
  Age: 74 Year
  Sex: Male

DRUGS (1)
  1. MIRALAX [Suspect]
     Active Substance: POLYETHYLENE GLYCOL 3350
     Indication: GASTROINTESTINAL DISORDER
     Dosage: HALF A BOTTLE A DAY
     Route: 048
     Dates: start: 20210719, end: 20210720

REACTIONS (2)
  - Product label issue [None]
  - Incorrect dose administered [Unknown]

NARRATIVE: CASE EVENT DATE: 20210720
